FAERS Safety Report 8114167 (Version 2)
Quarter: 2013Q1

REPORT INFORMATION
  Report Type: Spontaneous
  Country: US (occurrence: US)
  Receive Date: 20110831
  Receipt Date: 20130212
  Transmission Date: 20140127
  Serious: Yes (Hospitalization)
  Sender: FDA-Public Use
  Company Number: US-US-EMD SERONO, INC.-7078914

PATIENT
  Age: 35 Year
  Sex: Female
  Weight: 64 kg

DRUGS (11)
  1. REBIF [Suspect]
     Indication: PRODUCT USED FOR UNKNOWN INDICATION
     Route: 058
     Dates: start: 20110523, end: 20110725
  2. REBIF [Suspect]
     Route: 058
     Dates: end: 20110908
  3. LYRICA [Suspect]
  4. POTASIUM [Concomitant]
  5. THYROID MEDICATION [Concomitant]
  6. CALCIUM [Concomitant]
  7. MAGNESIUM [Concomitant]
  8. FENTANYL PATCH [Concomitant]
     Indication: PAIN
  9. TIZANIDINE [Concomitant]
     Indication: MUSCLE SPASMS
  10. AMBIEN [Concomitant]
     Indication: SLEEP DISORDER
  11. ADDERALL [Concomitant]
     Indication: FATIGUE

REACTIONS (4)
  - Renal failure [Recovered/Resolved]
  - Gastric ulcer haemorrhage [Recovered/Resolved]
  - Gait disturbance [Unknown]
  - Fatigue [Unknown]
